FAERS Safety Report 6886179-0 (Version None)
Quarter: 2010Q3

REPORT INFORMATION
  Report Type: 
  Country: None (occurrence: None)
  Receive Date: 20100729
  Receipt Date: 20081104
  Transmission Date: 20110219
  Serious: No
  Sender: FDA-Public Use
  Company Number: US-PFIZER INC-2008088452

PATIENT
  Sex: Male
  Weight: 90.9 kg

DRUGS (7)
  1. CELEBREX [Suspect]
     Indication: OSTEOARTHRITIS
     Dates: start: 20081016
  2. CARBIDOPA [Concomitant]
     Indication: PARKINSON'S DISEASE
  3. REQUIP [Concomitant]
  4. CITALOPRAM [Concomitant]
  5. TERAZOSIN HCL [Concomitant]
  6. OXYBUTYNIN CHLORIDE [Concomitant]
     Indication: URINARY INCONTINENCE
  7. OMEPRAZOLE [Concomitant]

REACTIONS (2)
  - CIRCUMSTANCE OR INFORMATION CAPABLE OF LEADING TO MEDICATION ERROR [None]
  - MALAISE [None]
